FAERS Safety Report 8265434-6 (Version None)
Quarter: 2012Q2

REPORT INFORMATION
  Report Type: 
  Country: None (occurrence: None)
  Receive Date: 20120406
  Receipt Date: 20120402
  Transmission Date: 20120825
  Serious: Yes (Hospitalization)
  Sender: FDA-Public Use
  Company Number: FR-PFIZER INC-2012032755

PATIENT
  Age: 66 Year
  Sex: Female

DRUGS (12)
  1. DOXORUBICIN HCL [Suspect]
     Indication: MANTLE CELL LYMPHOMA RECURRENT
  2. RITUXIMAB [Suspect]
     Indication: MANTLE CELL LYMPHOMA
     Dosage: UNK
     Dates: start: 20120126, end: 20120130
  3. CYCLOPHOSPHAMIDE [Suspect]
     Indication: MANTLE CELL LYMPHOMA
     Dosage: UNK
     Dates: start: 20120126, end: 20120130
  4. PREDNISONE [Suspect]
     Indication: MANTLE CELL LYMPHOMA RECURRENT
  5. DOXORUBICIN HCL [Suspect]
     Indication: MANTLE CELL LYMPHOMA
     Dosage: UNK
     Dates: start: 20120126, end: 20120130
  6. VINCRISTINE SULFATE [Suspect]
     Indication: MANTLE CELL LYMPHOMA RECURRENT
  7. CYCLOPHOSPHAMIDE [Suspect]
     Indication: MANTLE CELL LYMPHOMA RECURRENT
  8. TORISEL [Suspect]
     Indication: MANTLE CELL LYMPHOMA
     Dosage: 25 MG, CYCLIC
     Dates: start: 20120127, end: 20120202
  9. VINCRISTINE SULFATE [Suspect]
     Indication: MANTLE CELL LYMPHOMA
     Dosage: UNK
     Dates: start: 20120126, end: 20120130
  10. PREDNISONE [Suspect]
     Indication: MANTLE CELL LYMPHOMA
     Dosage: UNK
     Dates: start: 20120126, end: 20120130
  11. TORISEL [Suspect]
     Indication: MANTLE CELL LYMPHOMA RECURRENT
  12. RITUXIMAB [Suspect]
     Indication: MANTLE CELL LYMPHOMA RECURRENT

REACTIONS (3)
  - FEBRILE BONE MARROW APLASIA [None]
  - GASTROINTESTINAL HAEMORRHAGE [None]
  - FEBRILE NEUTROPENIA [None]
